FAERS Safety Report 25869865 (Version 1)
Quarter: 2025Q4

REPORT INFORMATION
  Report Type: Spontaneous
  Country: US (occurrence: None)
  Receive Date: 20251001
  Receipt Date: 20251001
  Transmission Date: 20260118
  Serious: Yes (Disabling)
  Sender: FDA-CTU
  Company Number: None

PATIENT
  Age: 15 Year
  Sex: Male
  Weight: 63 kg

DRUGS (4)
  1. FLUOXETINE [Suspect]
     Active Substance: FLUOXETINE HYDROCHLORIDE
     Indication: Depression
     Dates: start: 20250228, end: 20250301
  2. ESCITALOPRAM [Concomitant]
     Active Substance: ESCITALOPRAM OXALATE
  3. VITAMINS [Concomitant]
     Active Substance: VITAMINS
  4. PENICILLIN V [Concomitant]
     Active Substance: PENICILLIN V

REACTIONS (3)
  - Paediatric acute-onset neuropsychiatric syndrome [None]
  - Adverse reaction [None]
  - Product prescribing issue [None]

NARRATIVE: CASE EVENT DATE: 20250228
